FAERS Safety Report 17854166 (Version 1)
Quarter: 2020Q2

REPORT INFORMATION
  Report Type: Spontaneous
  Country: FR (occurrence: FR)
  Receive Date: 20200603
  Receipt Date: 20200603
  Transmission Date: 20200714
  Serious: Yes (Life-Threatening)
  Sender: FDA-Public Use
  Company Number: FR-ROCHE-2611835

PATIENT
  Age: 69 Year
  Sex: Male

DRUGS (4)
  1. TAMIFLU [Suspect]
     Active Substance: OSELTAMIVIR PHOSPHATE
     Indication: INFLUENZA
     Route: 048
     Dates: start: 20200316, end: 20200320
  2. TAZOBACTAM [Suspect]
     Active Substance: TAZOBACTAM
     Indication: PNEUMONIA
     Route: 042
     Dates: start: 20200316, end: 20200322
  3. AMIKACINE [AMIKACIN] [Suspect]
     Active Substance: AMIKACIN
     Indication: PNEUMONIA
     Route: 042
     Dates: start: 20200316, end: 20200316
  4. PIPERACILLINE [PIPERACILLIN] [Suspect]
     Active Substance: PIPERACILLIN
     Indication: PNEUMONIA
     Route: 042
     Dates: start: 20200316, end: 20200322

REACTIONS (2)
  - Febrile neutropenia [Recovered/Resolved]
  - Overdose [Unknown]

NARRATIVE: CASE EVENT DATE: 20200325
